FAERS Safety Report 8085288-0 (Version None)
Quarter: 2012Q1

REPORT INFORMATION
  Report Type: 
  Country: None (occurrence: None)
  Receive Date: 20120128
  Receipt Date: 20110315
  Transmission Date: 20120608
  Serious: No
  Sender: FDA-Public Use
  Company Number: US-ABBOTT-11P-163-0711801-00

PATIENT
  Age: 49 Year
  Sex: Male

DRUGS (6)
  1. HUMIRA [Suspect]
     Indication: PSORIASIS
     Dosage: LOADING DOSE
     Dates: start: 20110315
  2. PRAVASTATIN [Concomitant]
     Indication: BLOOD CHOLESTEROL INCREASED
  3. IBUPROFEN [Concomitant]
     Indication: PAIN
     Dosage: 800-1600MG DAILY
  4. HYDROCODONE BITARTRATE [Concomitant]
     Indication: PAIN
     Dosage: 7.5/325MG 3-4 TIMES DAILY
  5. LAVASA [Concomitant]
     Indication: BLOOD CHOLESTEROL INCREASED
  6. CITALOPRAM [Concomitant]
     Indication: DEPRESSION

REACTIONS (2)
  - HEART RATE DECREASED [None]
  - PALLOR [None]
